FAERS Safety Report 6455440-6 (Version None)
Quarter: 2009Q4

REPORT INFORMATION
  Report Type: 
  Country: None (occurrence: None)
  Receive Date: 20091125
  Receipt Date: 20091006
  Transmission Date: 20100525
  Serious: No
  Sender: FDA-Public Use
  Company Number: US-ABBOTT-09P-163-0559690-00

PATIENT
  Sex: Male
  Weight: 95.34 kg

DRUGS (8)
  1. SIMCOR [Suspect]
     Indication: BLOOD TRIGLYCERIDES INCREASED
     Dosage: 500/20MG
     Route: 048
  2. SIMCOR [Suspect]
     Indication: BLOOD CHOLESTEROL INCREASED
     Dosage: FORM: 1000/20MG
     Route: 048
     Dates: start: 20090201
  3. SULINDAC [Concomitant]
     Indication: PAIN
     Route: 048
  4. FENOFIBRATE [Concomitant]
     Indication: BLOOD TRIGLYCERIDES INCREASED
  5. ENBREL [Concomitant]
     Indication: ARTHRALGIA
     Route: 050
     Dates: start: 19990101
  6. ENBREL [Concomitant]
     Indication: PSORIATIC ARTHROPATHY
  7. ENBREL [Concomitant]
     Indication: PSORIASIS
  8. FISH OIL [Concomitant]
     Indication: BLOOD CHOLESTEROL INCREASED

REACTIONS (6)
  - ARTHRALGIA [None]
  - BLOOD PRESSURE INCREASED [None]
  - FEELING COLD [None]
  - FLUSHING [None]
  - MUSCLE FATIGUE [None]
  - MUSCLE SPASMS [None]
